FAERS Safety Report 23508293 (Version 1)
Quarter: 2024Q1

REPORT INFORMATION
  Report Type: Spontaneous
  Country: FR (occurrence: None)
  Receive Date: 20240209
  Receipt Date: 20240209
  Transmission Date: 20240410
  Serious: Yes (Hospitalization)
  Sender: FDA-Public Use
  Company Number: 2024A032337

PATIENT
  Age: 8 Month
  Sex: Female

DRUGS (2)
  1. ESOMEPRAZOLE [Suspect]
     Active Substance: ESOMEPRAZOLE
     Dosage: 6 DOSAGE FORM, 1/DAY
  2. AMOXICILLIN [Suspect]
     Active Substance: AMOXICILLIN
     Indication: Ear infection
     Dosage: 2 DOSAGE FORM

REACTIONS (3)
  - Sleep disorder [Recovered/Resolved]
  - Adverse event [Recovered/Resolved]
  - Product use issue [Unknown]
